FAERS Safety Report 19029065 (Version 1)
Quarter: 2021Q1

REPORT INFORMATION
  Report Type: Spontaneous
  Country: US (occurrence: US)
  Receive Date: 20210318
  Receipt Date: 20210318
  Transmission Date: 20210420
  Serious: Yes (Life-Threatening, Hospitalization)
  Sender: FDA-Public Use
  Company Number: US-TEVA-2021-US-1890387

PATIENT
  Age: 51 Year
  Sex: Male
  Weight: 158.3 kg

DRUGS (3)
  1. AMIKACIN. [Suspect]
     Active Substance: AMIKACIN
     Indication: ENTEROBACTER INFECTION
     Route: 042
     Dates: start: 20200708, end: 20200717
  2. CEFTAZIDIME/AVIBACTAM [Concomitant]
     Active Substance: AVIBACTAM SODIUM\CEFTAZIDIME
     Indication: ENTEROBACTER INFECTION
     Dosage: 1.25 GRAM DAILY;
     Route: 042
     Dates: start: 20200708, end: 20200717
  3. MEROPENEM. [Concomitant]
     Active Substance: MEROPENEM
     Indication: ENTEROBACTER INFECTION
     Dosage: 2 GRAM DAILY;
     Route: 042
     Dates: start: 20200716, end: 20200717

REACTIONS (1)
  - Treatment failure [Unknown]

NARRATIVE: CASE EVENT DATE: 202007
